FAERS Safety Report 8457366-5 (Version None)
Quarter: 2012Q2

REPORT INFORMATION
  Report Type: 
  Country: None (occurrence: None)
  Receive Date: 20120621
  Receipt Date: 20120619
  Transmission Date: 20120825
  Serious: No
  Sender: FDA-Public Use
  Company Number: US-PFIZER INC-2012147869

PATIENT
  Sex: Female
  Weight: 83.9 kg

DRUGS (8)
  1. ACETAMINOPHEN AND HYDROCODONE BITARTRATE [Concomitant]
     Dosage: UNK
  2. POTASSIUM [Concomitant]
     Dosage: UNK
  3. TRIAMTERENE AND HYDROCHLOROTHIAZIDE [Concomitant]
     Dosage: UNK
  4. LIPITOR [Concomitant]
     Indication: BLOOD CHOLESTEROL INCREASED
     Dosage: UNK
  5. CARISOPRODOL [Concomitant]
     Dosage: UNK
  6. VISTARIL [Concomitant]
     Dosage: UNK
  7. METOPROLOL [Concomitant]
     Indication: HEART RATE INCREASED
     Dosage: UNK
  8. LYRICA [Suspect]
     Indication: FIBROMYALGIA
     Dosage: 150 MG, 2X/DAY
     Route: 048
     Dates: start: 20111001, end: 20120601

REACTIONS (3)
  - ARTHRALGIA [None]
  - MYALGIA [None]
  - PAIN [None]
